FAERS Safety Report 25248692 (Version 2)
Quarter: 2025Q3

REPORT INFORMATION
  Report Type: Spontaneous
  Country: US (occurrence: US)
  Receive Date: 20250429
  Receipt Date: 20250816
  Transmission Date: 20251020
  Serious: Yes (Life-Threatening, Hospitalization, Other)
  Sender: AUROBINDO
  Company Number: US-AUROBINDO-AUR-APL-2025-021968

PATIENT
  Age: 25 Year
  Sex: Female

DRUGS (1)
  1. AMLODIPINE BESYLATE [Suspect]
     Active Substance: AMLODIPINE BESYLATE
     Indication: Product used for unknown indication
     Route: 048

REACTIONS (7)
  - Hyperglycaemia [Unknown]
  - Shock [Unknown]
  - Lactic acidosis [Unknown]
  - Intentional overdose [Unknown]
  - Distributive shock [Unknown]
  - Nodal rhythm [Unknown]
  - Hyperdynamic left ventricle [Unknown]
